FAERS Safety Report 13066918 (Version 4)
Quarter: 2017Q4

REPORT INFORMATION
  Report Type: Spontaneous
  Country: US (occurrence: US)
  Receive Date: 20161227
  Receipt Date: 20171017
  Transmission Date: 20180320
  Serious: No
  Sender: FDA-Public Use
  Company Number: US-SHIRE-US201619246

PATIENT
  Age: 37 Year
  Sex: Female
  Weight: 66.21 kg

DRUGS (1)
  1. XIIDRA [Suspect]
     Active Substance: LIFITEGRAST
     Indication: DRY EYE
     Dosage: 1 GTT (RIGHT EYE), 2X/DAY:BID
     Route: 047
     Dates: start: 20161201, end: 20161202

REACTIONS (5)
  - Eye swelling [Recovered/Resolved]
  - Instillation site pain [Recovered/Resolved]
  - Adverse drug reaction [Recovered/Resolved]
  - Product use issue [Recovered/Resolved]
  - Instillation site erythema [Recovered/Resolved]

NARRATIVE: CASE EVENT DATE: 20161201
